FAERS Safety Report 15597674 (Version 1)
Quarter: 2018Q4

REPORT INFORMATION
  Report Type: Spontaneous
  Country: US (occurrence: US)
  Receive Date: 20181108
  Receipt Date: 20181108
  Transmission Date: 20190205
  Serious: Yes (Other)
  Sender: FDA-Public Use
  Company Number: US-BAYER-2018-207121

PATIENT
  Age: 34 Year
  Sex: Female

DRUGS (1)
  1. MIRENA [Suspect]
     Active Substance: LEVONORGESTREL
     Indication: CONTRACEPTION
     Dosage: 20 MCG/24HR, CONT
     Route: 015
     Dates: start: 201210

REACTIONS (8)
  - Embedded device [Not Recovered/Not Resolved]
  - Procedural haemorrhage [None]
  - Device breakage [None]
  - Device difficult to use [None]
  - Post procedural discomfort [None]
  - Complication of device removal [None]
  - Procedural anxiety [None]
  - Device use issue [None]

NARRATIVE: CASE EVENT DATE: 201210
